FAERS Safety Report 25358453 (Version 1)
Quarter: 2025Q2

REPORT INFORMATION
  Report Type: Spontaneous
  Country: US (occurrence: US)
  Receive Date: 20250526
  Receipt Date: 20250526
  Transmission Date: 20250716
  Serious: No
  Sender: CSL BEHRING
  Company Number: US-BEH-2025206227

PATIENT
  Sex: Female

DRUGS (4)
  1. HIZENTRA [Suspect]
     Active Substance: HUMAN IMMUNOGLOBULIN G
     Indication: Immunodeficiency common variable
     Dosage: 12 G, QW
     Route: 058
     Dates: start: 202003
  2. HIZENTRA [Suspect]
     Active Substance: HUMAN IMMUNOGLOBULIN G
     Indication: Hypogammaglobulinaemia
     Dosage: 2 G, QW
     Route: 058
     Dates: start: 202003
  3. EPINEPHRINE [Concomitant]
     Active Substance: EPINEPHRINE
  4. HIZENTRA [Concomitant]
     Active Substance: HUMAN IMMUNOGLOBULIN G

REACTIONS (6)
  - Pharyngeal swelling [Unknown]
  - Pruritus [Unknown]
  - Dysphonia [Unknown]
  - Nausea [Unknown]
  - Hypoaesthesia [Unknown]
  - Wheezing [Unknown]
